FAERS Safety Report 4312035-8 (Version None)
Quarter: 2004Q1

REPORT INFORMATION
  Report Type: 
  Country: None (occurrence: None)
  Receive Date: 20040303
  Receipt Date: 20040226
  Transmission Date: 20041129
  Serious: Yes (Hospitalization)
  Sender: FDA-Public Use
  Company Number: 2003182906GB

PATIENT
  Age: 5 Year
  Sex: Female

DRUGS (2)
  1. GENOTROPIN [Suspect]
     Indication: PRADER-WILLI SYNDROME
     Dosage: SEE IMAGE
     Route: 058
     Dates: start: 20010405, end: 20021201
  2. GENOTROPIN [Suspect]
     Indication: PRADER-WILLI SYNDROME
     Dosage: SEE IMAGE
     Route: 058
     Dates: start: 20030116

REACTIONS (5)
  - CONSTIPATION [None]
  - FATIGUE [None]
  - HEADACHE [None]
  - PALLOR [None]
  - VIRAL INFECTION [None]
